FAERS Safety Report 4802078-X (Version None)
Quarter: 2005Q4

REPORT INFORMATION
  Report Type: 
  Country: None (occurrence: None)
  Receive Date: 20051011
  Receipt Date: 20050928
  Transmission Date: 20060501
  Serious: Yes (Disabling)
  Sender: FDA-Public Use
  Company Number: 2005135044

PATIENT
  Sex: Male
  Weight: 97.0698 kg

DRUGS (4)
  1. ACCUPRIL [Suspect]
     Indication: BLOOD PRESSURE
     Dosage: 20 MG (20 MG, 1 IN 1 D), ORAL
     Route: 048
  2. ALLEGRA [Concomitant]
  3. PREVACID [Concomitant]
  4. INSULIN [Concomitant]

REACTIONS (5)
  - BLINDNESS TRANSIENT [None]
  - BLOOD GLUCOSE INCREASED [None]
  - DIABETIC BLINDNESS [None]
  - DRUG DOSE OMISSION [None]
  - GASTRIC DISORDER [None]
